FAERS Safety Report 12559334 (Version 3)
Quarter: 2016Q4

REPORT INFORMATION
  Report Type: Report from Study
  Country: US (occurrence: US)
  Receive Date: 20160715
  Receipt Date: 20161110
  Transmission Date: 20170207
  Serious: Yes (Death, Hospitalization, Other)
  Sender: FDA-Public Use
  Company Number: US-JNJFOC-20160615306

PATIENT
  Age: 70 Year
  Sex: Female

DRUGS (8)
  1. IMBRUVICA [Suspect]
     Active Substance: IBRUTINIB
     Indication: EXTRANODAL MARGINAL ZONE B-CELL LYMPHOMA (MALT TYPE)
     Route: 048
     Dates: start: 201411, end: 2016
  2. PREVACID [Concomitant]
     Active Substance: LANSOPRAZOLE
  3. FLONASE [Concomitant]
     Active Substance: FLUTICASONE PROPIONATE
  4. BENADRYL [Concomitant]
     Active Substance: DIPHENHYDRAMINE HYDROCHLORIDE
  5. GAS-X [Concomitant]
     Active Substance: DIMETHICONE
  6. CALCIUM VITAMIN D3 [Concomitant]
  7. CLARITIN [Concomitant]
     Active Substance: LORATADINE
  8. HCTZ [Concomitant]
     Active Substance: HYDROCHLOROTHIAZIDE

REACTIONS (14)
  - Anaemia [Unknown]
  - Pleural effusion [Unknown]
  - Off label use [Recovered/Resolved]
  - Back pain [Unknown]
  - Dysphonia [Unknown]
  - Abdominal distension [Unknown]
  - Alanine aminotransferase increased [Unknown]
  - Post procedural complication [Unknown]
  - Oedema peripheral [Unknown]
  - Endometrial adenocarcinoma [Fatal]
  - Product use issue [Recovered/Resolved]
  - Lymphadenopathy [Unknown]
  - Thrombocytopenia [Unknown]
  - Cough [Unknown]

NARRATIVE: CASE EVENT DATE: 201411
